FAERS Safety Report 9862172 (Version 3)
Quarter: 2014Q1

REPORT INFORMATION
  Report Type: Spontaneous
  Country: JP (occurrence: JP)
  Receive Date: 20140203
  Receipt Date: 20140307
  Transmission Date: 20141002
  Serious: Yes (Hospitalization)
  Sender: FDA-Public Use
  Company Number: JP-ASTELLAS-2014JP000770

PATIENT
  Age: 79 Year
  Sex: Female
  Weight: 43.1 kg

DRUGS (10)
  1. BETANIS [Suspect]
     Indication: HYPERTONIC BLADDER
     Dosage: 25 MG, UID/QD
     Route: 048
     Dates: start: 20131226, end: 20140112
  2. VESICARE [Concomitant]
     Indication: HYPERTONIC BLADDER
     Dosage: 10 MG, UID/QD
     Route: 048
     Dates: start: 20080124
  3. RIZABEN [Concomitant]
     Dosage: 100 MG, BID
     Route: 048
     Dates: start: 20130516
  4. ARICEPT [Concomitant]
     Dosage: 10 MG, UID/QD
     Route: 048
     Dates: start: 20121016
  5. BAYASPIRIN [Concomitant]
     Dosage: 100 MG, UID/QD
     Route: 048
     Dates: start: 20000426
  6. PERINDOPRIL [Concomitant]
     Dosage: UNK
     Route: 048
     Dates: start: 20130516
  7. NORVASC [Concomitant]
     Dosage: 5 MG, UID/QD
     Route: 048
     Dates: start: 20000426
  8. MAINHEART [Concomitant]
     Dosage: 2.5 MG, UID/QD
     Route: 048
     Dates: start: 20130830
  9. MIYA BM [Concomitant]
     Dosage: 1 G, UID/QD
     Route: 048
     Dates: start: 20130516
  10. KOBASHIRIN [Concomitant]
     Route: 048

REACTIONS (1)
  - Hypoglycaemia [Recovered/Resolved]
